FAERS Safety Report 15362592 (Version 5)
Quarter: 2019Q1

REPORT INFORMATION
  Report Type: Report from Study
  Country: US (occurrence: US)
  Receive Date: 20180907
  Receipt Date: 20190111
  Transmission Date: 20190417
  Serious: Yes (Other)
  Sender: FDA-Public Use
  Company Number: US-SA-2018SA175125

PATIENT
  Age: 62 Year
  Sex: Female

DRUGS (6)
  1. BENLYSTA [Concomitant]
     Active Substance: BELIMUMAB
  2. ORENCIA [Concomitant]
     Active Substance: ABATACEPT
  3. SARILUMAB [Suspect]
     Active Substance: SARILUMAB
     Indication: RHEUMATOID ARTHRITIS
     Dosage: 200 MG, QOW
     Route: 058
     Dates: start: 20180618
  4. SARILUMAB [Suspect]
     Active Substance: SARILUMAB
     Indication: AUTOIMMUNE THYROIDITIS
  5. SARILUMAB [Suspect]
     Active Substance: SARILUMAB
     Indication: BEHCET^S SYNDROME
     Dosage: 200 MG, QOW
     Route: 058
     Dates: start: 201808
  6. SARILUMAB [Suspect]
     Active Substance: SARILUMAB
     Indication: SYSTEMIC LUPUS ERYTHEMATOSUS

REACTIONS (26)
  - Behcet^s syndrome [Not Recovered/Not Resolved]
  - Skin lesion [Not Recovered/Not Resolved]
  - Back pain [Not Recovered/Not Resolved]
  - Skin exfoliation [Recovered/Resolved]
  - Injection site erythema [Recovered/Resolved]
  - Feeling abnormal [Not Recovered/Not Resolved]
  - Pain [Not Recovered/Not Resolved]
  - Systemic lupus erythematosus [Not Recovered/Not Resolved]
  - Dyspnoea [Not Recovered/Not Resolved]
  - Cough [Not Recovered/Not Resolved]
  - Rhinorrhoea [Not Recovered/Not Resolved]
  - Dry skin [Not Recovered/Not Resolved]
  - Nodule [Not Recovered/Not Resolved]
  - Arthralgia [Not Recovered/Not Resolved]
  - Product use in unapproved indication [Unknown]
  - Drug ineffective [Recovered/Resolved]
  - Sleep disorder [Not Recovered/Not Resolved]
  - Contusion [Not Recovered/Not Resolved]
  - Condition aggravated [Not Recovered/Not Resolved]
  - Peripheral swelling [Not Recovered/Not Resolved]
  - Influenza like illness [Not Recovered/Not Resolved]
  - Chest pain [Not Recovered/Not Resolved]
  - Injection site swelling [Recovered/Resolved]
  - Oral disorder [Not Recovered/Not Resolved]
  - Malaise [Not Recovered/Not Resolved]
  - Head discomfort [Not Recovered/Not Resolved]

NARRATIVE: CASE EVENT DATE: 2018
